FAERS Safety Report 13472177 (Version 1)
Quarter: 2017Q2

REPORT INFORMATION
  Report Type: Spontaneous
  Country: CH (occurrence: US)
  Receive Date: 20170424
  Receipt Date: 20170424
  Transmission Date: 20170830
  Serious: Yes (Death)
  Sender: FDA-Public Use
  Company Number: CH-CORDEN PHARMA LATINA S.P.A.-US-2017COR000090

PATIENT
  Age: 64 Year
  Sex: Male

DRUGS (6)
  1. BLEOMYCIN [Suspect]
     Active Substance: BLEOMYCIN SULFATE
     Indication: TESTICULAR SEMINOMA (PURE) STAGE I
     Dosage: UNK, 1 CYCLE
  2. ETOPOSIDE. [Suspect]
     Active Substance: ETOPOSIDE
     Indication: TESTICULAR SEMINOMA (PURE) STAGE I
     Dosage: UNK, 1 CYCLE
  3. ETOPOSIDE. [Suspect]
     Active Substance: ETOPOSIDE
     Dosage: UNK, 3 CYCLES
  4. CISPLATIN. [Suspect]
     Active Substance: CISPLATIN
     Dosage: UNK, 3 CYCLES
  5. CARBOPLATIN. [Suspect]
     Active Substance: CARBOPLATIN
     Indication: TESTICULAR SEMINOMA (PURE) STAGE I
     Dosage: UNK
  6. CISPLATIN. [Suspect]
     Active Substance: CISPLATIN
     Indication: TESTICULAR SEMINOMA (PURE) STAGE I
     Dosage: UNK, 1 CYCLE

REACTIONS (1)
  - Chronic obstructive pulmonary disease [Fatal]
